FAERS Safety Report 8583465 (Version 5)
Quarter: 2012Q4

REPORT INFORMATION
  Report Type: 
  Country: GB (occurrence: GB)
  Receive Date: 20120529
  Receipt Date: 20120928
  Transmission Date: 20130627
  Serious: Yes (Death, Hospitalization, Other)
  Sender: FDA-Public Use
  Company Number: GB-ABBOTT-12P-167-0939556-00

PATIENT
  Age: 40 Year
  Sex: Male
  Weight: 104 kg

DRUGS (14)
  1. KLARICID TABLETS [Suspect]
     Indication: LOWER RESPIRATORY TRACT INFECTION
     Dosage: Cumulative dose to 1st reaction: 1000 mg
     Route: 048
     Dates: start: 20111027, end: 20111030
  2. KLARICID TABLETS [Interacting]
     Indication: UPPER RESPIRATORY TRACT INFECTION
  3. HUMIRA 40 MG/ 0.8 ML PRE-FILLED SYRINGE [Suspect]
     Indication: CROHN^S DISEASE
     Route: 058
     Dates: start: 20111005, end: 20111019
  4. METHADONE [Interacting]
     Indication: PAIN MANAGEMENT
     Dosage: 1:1 strength but at a 10% reduction of the oramorph
     Route: 048
     Dates: start: 20111025, end: 20111030
  5. METHADONE [Interacting]
     Route: 048
     Dates: start: 20111027, end: 20111028
  6. METHADONE [Interacting]
     Route: 048
     Dates: start: 20111028, end: 20111030
  7. ORAMORPH [Concomitant]
     Indication: PAIN
     Dosage: Cumulative dose to 1st reaction: 11300 mg
     Route: 048
     Dates: start: 20110707, end: 20111025
  8. ORAMORPH [Concomitant]
     Indication: CROHN^S DISEASE
  9. ORAMORPH [Concomitant]
     Indication: ANALGESIC THERAPY
  10. LANSOPRAZOLE [Concomitant]
     Indication: GASTRITIS
     Dosage: Cumulative dose to 1st reaction: 270 mg
     Route: 048
     Dates: start: 20111019
  11. MULTIVITAMIN [Concomitant]
     Indication: PRODUCT USED FOR UNKNOWN INDICATION
     Dosage: Vitamin BPC
  12. ADCAL D3 [Concomitant]
     Indication: CROHN^S DISEASE
     Dosage: Cumulative dose to 1st reaction: 162 DF
     Route: 048
     Dates: start: 20110808
  13. VENTOLIN [Concomitant]
     Indication: PRODUCT USED FOR UNKNOWN INDICATION
  14. DIAZEPAM [Concomitant]
     Indication: ANXIETY
     Route: 048
     Dates: start: 20111019

REACTIONS (33)
  - Toxicity to various agents [Fatal]
  - Diffuse alveolar damage [Fatal]
  - Inhibitory drug interaction [Fatal]
  - Dysarthria [Fatal]
  - Malaise [Fatal]
  - Oropharyngeal pain [Fatal]
  - Headache [Fatal]
  - Vomiting [Fatal]
  - Hiccups [Fatal]
  - Dysuria [Fatal]
  - C-reactive protein increased [Fatal]
  - White blood cell count increased [Fatal]
  - Heart rate increased [Fatal]
  - Hyperhidrosis [Fatal]
  - Blood urine present [Fatal]
  - Erythema [Fatal]
  - Pharyngeal erythema [Fatal]
  - Somnolence [Fatal]
  - Tremor [Fatal]
  - Vomiting [Fatal]
  - Rectal haemorrhage [Fatal]
  - Crohn^s disease [Fatal]
  - Diplopia [Unknown]
  - Vision blurred [Unknown]
  - Chest pain [Unknown]
  - Dizziness [Unknown]
  - Infection [Unknown]
  - Drug level above therapeutic [Unknown]
  - Overdose [Fatal]
  - Pneumonitis [Fatal]
  - Influenza [Fatal]
  - Viral infection [Fatal]
  - Pain [Unknown]
